FAERS Safety Report 18317805 (Version 1)
Quarter: 2020Q3

REPORT INFORMATION
  Report Type: Spontaneous
  Country: DE (occurrence: DE)
  Receive Date: 20200928
  Receipt Date: 20200928
  Transmission Date: 20201103
  Serious: Yes (Hospitalization)
  Sender: FDA-Public Use
  Company Number: DE-TEVA-2020-DE-1830770

PATIENT
  Age: 68 Year
  Sex: Female

DRUGS (7)
  1. TORASEMID [Suspect]
     Active Substance: TORSEMIDE
     Dosage: 1?1.5?0?0, 10 MILLIGRAM
  2. METOPROLOL. [Concomitant]
     Active Substance: METOPROLOL
     Dosage: 190 MILLIGRAM DAILY; UNIT DOSE : 95 MG, 1?0?1?0 ,EXTENDED?RELEASE
  3. PANTOPRAZOL [Concomitant]
     Active Substance: PANTOPRAZOLE SODIUM
     Dosage: 40 MILLIGRAM DAILY; 0?0?0?1
  4. LEVOTHYROXIN?NATRIUM [Concomitant]
     Active Substance: LEVOTHYROXINE SODIUM
     Dosage: 25 MICROGRAM DAILY; 1?0?0?0
  5. NITRENDIPIN [Concomitant]
     Active Substance: NITRENDIPINE
     Dosage: 40 MILLIGRAM DAILY; UNIT DOSE : 20 MG, 1?0?1?0
  6. EISEN(II) [Concomitant]
     Dosage: 100 MILLIGRAM DAILY; 1?0?0?0
  7. ASS 100 [Concomitant]
     Active Substance: ASPIRIN
     Dosage: 100 MILLIGRAM DAILY; 1?0?0?0

REACTIONS (5)
  - Hyperkalaemia [Recovering/Resolving]
  - Metabolic acidosis [Recovering/Resolving]
  - Acute kidney injury [Recovering/Resolving]
  - Electrolyte imbalance [Recovering/Resolving]
  - Renal impairment [Recovering/Resolving]
